FAERS Safety Report 25076936 (Version 1)
Quarter: 2025Q1

REPORT INFORMATION
  Report Type: Spontaneous
  Country: FI (occurrence: FI)
  Receive Date: 20250314
  Receipt Date: 20250314
  Transmission Date: 20250408
  Serious: Yes (Hospitalization, Other)
  Sender: NOVITIUM PHARMA
  Company Number: FI-NOVITIUMPHARMA-2025FINVP00634

PATIENT
  Age: 38 Year
  Sex: Male

DRUGS (17)
  1. LACOSAMIDE [Suspect]
     Active Substance: LACOSAMIDE
     Indication: Status epilepticus
     Route: 042
  2. LAMOTRIGINE [Concomitant]
     Active Substance: LAMOTRIGINE
     Indication: Partial seizures
  3. MIDAZOLAM [Concomitant]
     Active Substance: MIDAZOLAM
     Indication: Status epilepticus
     Route: 042
  4. LEVETIRACETAM [Concomitant]
     Active Substance: LEVETIRACETAM
     Route: 042
  5. FOSPHENYTOIN [Concomitant]
     Active Substance: FOSPHENYTOIN
     Indication: Status epilepticus
     Route: 042
  6. PROPOFOL [Concomitant]
     Active Substance: PROPOFOL
     Indication: Status epilepticus
  7. THIOPENTAL SODIUM [Concomitant]
     Active Substance: THIOPENTAL SODIUM
     Indication: Status epilepticus
  8. LORAZEPAM [Concomitant]
     Active Substance: LORAZEPAM
     Indication: Status epilepticus
     Route: 042
  9. PHENOBARBITAL [Concomitant]
     Active Substance: PHENOBARBITAL
     Indication: Status epilepticus
     Route: 048
  10. PHENOBARBITAL [Concomitant]
     Active Substance: PHENOBARBITAL
     Route: 042
  11. VALPROIC ACID [Concomitant]
     Active Substance: VALPROIC ACID
     Indication: Status epilepticus
     Route: 042
  12. KETAMINE [Concomitant]
     Active Substance: KETAMINE
     Indication: Status epilepticus
  13. METHYLPREDNISOLONE [Concomitant]
     Active Substance: METHYLPREDNISOLONE
     Indication: Febrile infection-related epilepsy syndrome
     Route: 042
  14. PREDNISOLONE [Concomitant]
     Active Substance: PREDNISOLONE
     Indication: Febrile infection-related epilepsy syndrome
     Route: 048
  15. Immune globulin [Concomitant]
     Indication: Febrile infection-related epilepsy syndrome
     Route: 042
  16. ACYCLOVIR [Concomitant]
     Active Substance: ACYCLOVIR
  17. CEFTRIAXONE [Concomitant]
     Active Substance: CEFTRIAXONE

REACTIONS (3)
  - Acute kidney injury [Unknown]
  - Renal failure [Unknown]
  - Drug ineffective [Unknown]
